FAERS Safety Report 13229523 (Version 1)
Quarter: 2017Q1

REPORT INFORMATION
  Report Type: Spontaneous
  Country: US (occurrence: US)
  Receive Date: 20170213
  Receipt Date: 20170213
  Transmission Date: 20170428
  Serious: Yes (Disabling)
  Sender: FDA-Public Use
  Company Number: None

PATIENT
  Age: 65 Year
  Sex: Female
  Weight: 60.75 kg

DRUGS (10)
  1. NOVOLIN N [Concomitant]
     Active Substance: INSULIN HUMAN
  2. CHROMIUM PICOLINARE [Concomitant]
  3. FENOFIBRATE. [Suspect]
     Active Substance: FENOFIBRATE
     Indication: BLOOD TRIGLYCERIDES INCREASED
     Dosage: ?          QUANTITY:1 TABLET(S);?
     Route: 048
     Dates: start: 20170124, end: 20170213
  4. METFORMIN [Concomitant]
     Active Substance: METFORMIN HYDROCHLORIDE
  5. DULOXETINE HCL [Concomitant]
     Active Substance: DULOXETINE HYDROCHLORIDE
  6. VITAMIN D3 [Concomitant]
     Active Substance: CHOLECALCIFEROL
  7. FISH OI [Concomitant]
  8. NOVOLIN R [Concomitant]
     Active Substance: INSULIN HUMAN
  9. ALENDRONATE SODIUM. [Concomitant]
     Active Substance: ALENDRONATE SODIUM
  10. CIMMINON [Concomitant]

REACTIONS (7)
  - Anger [None]
  - Rash [None]
  - Eye pruritus [None]
  - Muscle disorder [None]
  - Gait disturbance [None]
  - Reaction to drug excipients [None]
  - Eye swelling [None]

NARRATIVE: CASE EVENT DATE: 20170213
